FAERS Safety Report 22129933 (Version 1)
Quarter: 2023Q1

REPORT INFORMATION
  Report Type: Spontaneous
  Country: US (occurrence: None)
  Receive Date: 20230323
  Receipt Date: 20230323
  Transmission Date: 20230418
  Serious: Yes (Hospitalization)
  Sender: FDA-Public Use
  Company Number: 2023A063283

PATIENT
  Age: 67 Year
  Sex: Male

DRUGS (2)
  1. FARXIGA [Suspect]
     Active Substance: DAPAGLIFLOZIN PROPANEDIOL
     Indication: Diabetes mellitus
     Route: 048
  2. FARXIGA [Suspect]
     Active Substance: DAPAGLIFLOZIN PROPANEDIOL
     Indication: Chronic kidney disease
     Route: 048

REACTIONS (6)
  - Headache [Recovering/Resolving]
  - Feeling abnormal [Recovering/Resolving]
  - Dry mouth [Recovering/Resolving]
  - Visual impairment [Recovering/Resolving]
  - Pain [Recovering/Resolving]
  - Weight decreased [Recovering/Resolving]
